FAERS Safety Report 23847832 (Version 1)
Quarter: 2024Q2

REPORT INFORMATION
  Report Type: Spontaneous
  Country: US (occurrence: None)
  Receive Date: 20240510
  Receipt Date: 20240510
  Transmission Date: 20240716
  Serious: Yes (Hospitalization)
  Sender: FDA-Public Use
  Company Number: None

PATIENT
  Age: 33 Year
  Sex: Male
  Weight: 78 kg

DRUGS (2)
  1. CEFAZOLIN SODIUM [Suspect]
     Active Substance: CEFAZOLIN SODIUM
     Indication: Preoperative care
     Dosage: FREQUENCY : ONCE;?
     Route: 042
     Dates: start: 20220519, end: 20220519
  2. CEFAZOLIN SODIUM [Suspect]
     Active Substance: CEFAZOLIN SODIUM
     Indication: Prophylaxis

REACTIONS (11)
  - Rash [None]
  - SJS-TEN overlap [None]
  - Decreased appetite [None]
  - Asthenia [None]
  - Blood pressure increased [None]
  - Respiratory rate increased [None]
  - Feeling cold [None]
  - Tremor [None]
  - Scab [None]
  - Urethral meatus stenosis [None]
  - Symblepharon [None]

NARRATIVE: CASE EVENT DATE: 20220524
